FAERS Safety Report 9672253 (Version 2)
Quarter: 2013Q4

REPORT INFORMATION
  Report Type: Report from Study
  Country: MX (occurrence: MX)
  Receive Date: 20131106
  Receipt Date: 20131106
  Transmission Date: 20140711
  Serious: Yes (Death, Hospitalization, Disabling, Other)
  Sender: FDA-Public Use
  Company Number: PHHY2013MX010144

PATIENT
  Age: 75 Year
  Sex: Male

DRUGS (5)
  1. GALVUS [Suspect]
     Indication: DIABETES MELLITUS
     Dosage: 50 MG DAILY
     Route: 048
     Dates: start: 200811
  2. EXFORGE HCT [Suspect]
     Indication: HYPERTENSION
     Dosage: 1 DF (160 MG VALS/5 MG AMLO/12.5 MG HCTZ) DAILY
     Route: 048
     Dates: start: 201010
  3. EXFORGE HCT [Suspect]
     Dosage: 0.5 DF (160 MG VALS/5 MG AMLO/12.5 MG HCTZ), DAILY
     Route: 048
     Dates: start: 2011
  4. EXFORGE [Suspect]
     Indication: HYPERTENSION
     Dosage: 0.5 DF (160 MG VALS/5 MG AMLO) DAILY
     Route: 048
  5. AMARYL [Concomitant]
     Indication: DIABETES MELLITUS
     Dosage: 1 UKN, UNK
     Dates: start: 201111

REACTIONS (11)
  - Respiratory failure [Fatal]
  - Convulsion [Recovering/Resolving]
  - Dementia Alzheimer^s type [Recovering/Resolving]
  - Amnesia [Unknown]
  - Abnormal behaviour [Not Recovered/Not Resolved]
  - Fall [Recovering/Resolving]
  - Joint dislocation [Not Recovered/Not Resolved]
  - Arthralgia [Recovering/Resolving]
  - Lethargy [Not Recovered/Not Resolved]
  - Skin discolouration [Recovered/Resolved]
  - Wrong technique in drug usage process [Unknown]
